FAERS Safety Report 5966137-0 (Version None)
Quarter: 2008Q4

REPORT INFORMATION
  Report Type: 
  Country: None (occurrence: None)
  Receive Date: 20081125
  Receipt Date: 20081114
  Transmission Date: 20090506
  Serious: Yes (Life-Threatening, Hospitalization, Disabling)
  Sender: FDA-Public Use
  Company Number: US-PURDUE-USA_2008_0034723

PATIENT
  Age: 22 Year
  Sex: Male
  Weight: 90 kg

DRUGS (2)
  1. ALCOHOL                            /00002101/ [Suspect]
  2. OXYCONTIN [Suspect]
     Indication: DRUG ABUSE

REACTIONS (9)
  - ANOXIC ENCEPHALOPATHY [None]
  - BRAIN INJURY [None]
  - CARDIO-RESPIRATORY ARREST [None]
  - COMA [None]
  - DRUG ABUSE [None]
  - MULTI-ORGAN FAILURE [None]
  - MULTIPLE DRUG OVERDOSE [None]
  - RHABDOMYOLYSIS [None]
  - SHOCK [None]
